FAERS Safety Report 19824443 (Version 1)
Quarter: 2021Q3

REPORT INFORMATION
  Report Type: Spontaneous
  Country: AT (occurrence: DE)
  Receive Date: 20210913
  Receipt Date: 20210913
  Transmission Date: 20211014
  Serious: Yes (Other)
  Sender: FDA-Public Use
  Company Number: AT-GILEAD-2021-0547824

PATIENT
  Age: 57 Year
  Sex: Female

DRUGS (1)
  1. TECARTUS [Suspect]
     Active Substance: BREXUCABTAGENE AUTOLEUCEL
     Indication: MANTLE CELL LYMPHOMA STAGE IV
     Dosage: UNK
     Route: 042
     Dates: start: 202006, end: 202006

REACTIONS (4)
  - Coombs negative haemolytic anaemia [Recovered/Resolved]
  - Cytokine release syndrome [Unknown]
  - Pancytopenia [Recovered/Resolved]
  - Neurotoxicity [Unknown]
